FAERS Safety Report 14923104 (Version 12)
Quarter: 2019Q2

REPORT INFORMATION
  Report Type: Report from Study
  Country: CA (occurrence: CA)
  Receive Date: 20180522
  Receipt Date: 20190620
  Transmission Date: 20190711
  Serious: Yes (Other)
  Sender: FDA-Public Use
  Company Number: PHHY2016CA151379

PATIENT
  Age: 54 Year
  Sex: Male

DRUGS (2)
  1. SANDOSTATIN LAR DEPOT [Suspect]
     Active Substance: OCTREOTIDE ACETATE
     Indication: NEUROENDOCRINE TUMOUR
     Dosage: 30 MG, QMO (EVERY 4 WEEKS)
     Route: 030
     Dates: start: 20161003, end: 20170123
  2. SANDOSTATIN LAR DEPOT [Suspect]
     Active Substance: OCTREOTIDE ACETATE
     Indication: CARCINOID TUMOUR
     Dosage: 40 MG, QMO (EVERY 4 WEEKS)
     Route: 030
     Dates: start: 20170220

REACTIONS (36)
  - Anal abscess [Recovered/Resolved]
  - Myopathy [Unknown]
  - Rash [Unknown]
  - Hepatic congestion [Unknown]
  - Bowel movement irregularity [Recovered/Resolved]
  - Diarrhoea [Recovering/Resolving]
  - Injection site pain [Unknown]
  - Anal fistula [Recovered/Resolved]
  - Acute sinusitis [Not Recovered/Not Resolved]
  - Blood pressure increased [Unknown]
  - Blood pressure systolic decreased [Unknown]
  - Flatulence [Unknown]
  - Faeces discoloured [Unknown]
  - Dyspepsia [Unknown]
  - Heart rate decreased [Unknown]
  - Nasal septum deviation [Unknown]
  - Eustachian tube obstruction [Unknown]
  - Heart rate increased [Unknown]
  - Injection site hypersensitivity [Recovered/Resolved]
  - Feeling abnormal [Unknown]
  - Proctalgia [Unknown]
  - Injection site hypersensitivity [Unknown]
  - Neuroendocrine tumour [Unknown]
  - Somnolence [Unknown]
  - Tendonitis [Unknown]
  - Needle issue [Unknown]
  - Synovial cyst [Unknown]
  - Chronic sinusitis [Unknown]
  - Body temperature decreased [Unknown]
  - Procedural pain [Recovering/Resolving]
  - Fatigue [Not Recovered/Not Resolved]
  - Diverticulitis [Unknown]
  - Metastatic lymphoma [Unknown]
  - Malignant neoplasm progression [Unknown]
  - Haemorrhoids [Recovering/Resolving]
  - Injection site discomfort [Recovered/Resolved]

NARRATIVE: CASE EVENT DATE: 2016
